FAERS Safety Report 4390983-0 (Version None)
Quarter: 2004Q3

REPORT INFORMATION
  Report Type: 
  Country: None (occurrence: None)
  Receive Date: 20040701
  Receipt Date: 20040701
  Transmission Date: 20050211
  Serious: Yes (Hospitalization)
  Sender: FDA-Public Use
  Company Number: None

PATIENT
  Age: 53 Year
  Sex: Male
  Weight: 83 kg

DRUGS (7)
  1. TAXOTERE [Suspect]
     Indication: SQUAMOUS CELL CARCINOMA
     Dosage: 59MG IV
     Route: 042
     Dates: start: 20040504
  2. TAXOTERE [Suspect]
     Indication: SQUAMOUS CELL CARCINOMA
     Dosage: 59MG IV
     Route: 042
     Dates: start: 20040511
  3. TAXOTERE [Suspect]
     Indication: SQUAMOUS CELL CARCINOMA
     Dosage: 59MG IV
     Route: 042
     Dates: start: 20040519
  4. IFOSFAMIDE [Suspect]
     Indication: SQUAMOUS CELL CARCINOMA
     Dosage: 1,950 MG IV
     Route: 042
     Dates: start: 20040504
  5. IFOSFAMIDE [Suspect]
     Indication: SQUAMOUS CELL CARCINOMA
     Dosage: 1,950 MG IV
     Route: 042
     Dates: start: 20040511
  6. IFOSFAMIDE [Suspect]
     Indication: SQUAMOUS CELL CARCINOMA
     Dosage: 1,950 MG IV
     Route: 042
     Dates: start: 20040519
  7. CARBOPLATIN [Suspect]
     Indication: SQUAMOUS CELL CARCINOMA
     Dosage: 654 MG IV
     Route: 042
     Dates: start: 20040504

REACTIONS (1)
  - DEEP VEIN THROMBOSIS [None]
